FAERS Safety Report 21315717 (Version 2)
Quarter: 2022Q4

REPORT INFORMATION
  Report Type: Spontaneous
  Country: US (occurrence: US)
  Receive Date: 20220909
  Receipt Date: 20221221
  Transmission Date: 20230113
  Serious: No
  Sender: FDA-Public Use
  Company Number: US-ASCENDIS PHARMA-2022US000646

PATIENT

DRUGS (3)
  1. SKYTROFA [Suspect]
     Active Substance: LONAPEGSOMATROPIN-TCGD
     Indication: Hypopituitarism
     Dosage: 11 MG ONCE A WEEK
     Route: 058
     Dates: start: 20220520, end: 20220920
  2. SKYTROFA [Suspect]
     Active Substance: LONAPEGSOMATROPIN-TCGD
     Indication: Hormone level abnormal
  3. SKYTROFA [Suspect]
     Active Substance: LONAPEGSOMATROPIN-TCGD
     Indication: Growth hormone deficiency

REACTIONS (8)
  - Device malfunction [Recovered/Resolved]
  - Product dose omission issue [Unknown]
  - Crying [Unknown]
  - Liquid product physical issue [Unknown]
  - Anger [Unknown]
  - Aggression [Unknown]
  - Social problem [Unknown]
  - Colostomy [Unknown]

NARRATIVE: CASE EVENT DATE: 20220701
